FAERS Safety Report 11038122 (Version 1)
Quarter: 2015Q2

REPORT INFORMATION
  Report Type: Spontaneous
  Country: US (occurrence: None)
  Receive Date: 20150415
  Receipt Date: 20150415
  Transmission Date: 20150821
  Serious: No
  Sender: FDA-Public Use
  Company Number: None

PATIENT
  Age: 63 Year
  Sex: Male
  Weight: 86.4 kg

DRUGS (1)
  1. HUMIRA [Suspect]
     Active Substance: ADALIMUMAB
     Indication: JOINT ANKYLOSIS
     Route: 058
     Dates: start: 201410

REACTIONS (2)
  - Libido decreased [None]
  - Hypoaesthesia [None]

NARRATIVE: CASE EVENT DATE: 20150414
